FAERS Safety Report 4831326-5 (Version None)
Quarter: 2005Q4

REPORT INFORMATION
  Report Type: 
  Country: None (occurrence: None)
  Receive Date: 20051118
  Receipt Date: 20051111
  Transmission Date: 20060501
  Serious: Yes (Hospitalization)
  Sender: FDA-Public Use
  Company Number: US-JNJFOC-20051103247

PATIENT
  Age: 38 Year
  Sex: Female
  Weight: 129.73 kg

DRUGS (4)
  1. DITROPAN XL [Suspect]
     Indication: URINARY INCONTINENCE
     Route: 048
  2. AMARYL [Concomitant]
  3. ACTOS [Concomitant]
  4. LANTIS [Concomitant]

REACTIONS (5)
  - DIABETES MELLITUS INADEQUATE CONTROL [None]
  - DYSPNOEA [None]
  - FLUID RETENTION [None]
  - LOSS OF CONSCIOUSNESS [None]
  - WEIGHT INCREASED [None]
